FAERS Safety Report 9340618 (Version 1)
Quarter: 2013Q2

REPORT INFORMATION
  Report Type: Spontaneous
  Country: US (occurrence: US)
  Receive Date: 20130610
  Receipt Date: 20130610
  Transmission Date: 20140414
  Serious: Yes (Other)
  Sender: FDA-Public Use
  Company Number: PHHY2013US057417

PATIENT
  Age: 3 Year
  Sex: Female

DRUGS (3)
  1. TACROLIMUS [Suspect]
     Indication: IMMUNOSUPPRESSION
     Dosage: 1 MG, BID
     Route: 048
  2. PENICILLIN V POTASSIUM [Suspect]
     Dosage: 125 MG, BID
     Route: 048
  3. PREDNISOLONE [Concomitant]
     Dosage: 2.5 MG, QOD
     Route: 048

REACTIONS (2)
  - Post transplant lymphoproliferative disorder [Unknown]
  - Coombs positive haemolytic anaemia [Recovered/Resolved]
